FAERS Safety Report 20754671 (Version 3)
Quarter: 2024Q2

REPORT INFORMATION
  Report Type: Spontaneous
  Country: US (occurrence: None)
  Receive Date: 20220426
  Receipt Date: 20240418
  Transmission Date: 20240716
  Serious: No
  Sender: FDA-Public Use
  Company Number: US-ROCHE-2969300

PATIENT
  Age: 83 Year
  Sex: Female

DRUGS (2)
  1. ESBRIET [Suspect]
     Active Substance: PIRFENIDONE
     Indication: Idiopathic pulmonary fibrosis
     Dosage: TID
     Route: 048
  2. ESBRIET [Suspect]
     Active Substance: PIRFENIDONE
     Dosage: TID
     Route: 048
     Dates: start: 20190730

REACTIONS (7)
  - Somnolence [Unknown]
  - Pruritus [Unknown]
  - Product dose omission issue [Unknown]
  - Productive cough [Unknown]
  - Gait disturbance [Unknown]
  - Mechanical ventilation [Unknown]
  - Dyspnoea exertional [Unknown]

NARRATIVE: CASE EVENT DATE: 20220415
